FAERS Safety Report 7981505-3 (Version None)
Quarter: 2011Q4

REPORT INFORMATION
  Report Type: 
  Country: None (occurrence: None)
  Receive Date: 20111215
  Receipt Date: 20111212
  Transmission Date: 20120403
  Serious: Yes (Life-Threatening, Hospitalization, Other)
  Sender: FDA-Public Use
  Company Number: FR-PFIZER INC-2011152203

PATIENT
  Age: 62 Year
  Sex: Male

DRUGS (8)
  1. ASPIRIN [Concomitant]
  2. PANTOPRAZOLE [Concomitant]
  3. INSULIN [Concomitant]
  4. LASIX [Concomitant]
  5. ALDACTONE [Concomitant]
  6. LYRICA [Suspect]
     Indication: NEURALGIA
     Dosage: UNK
     Route: 048
  7. PLAVIX [Concomitant]
  8. PROCORALAN [Concomitant]

REACTIONS (6)
  - CARDIAC FAILURE [None]
  - CARDIOGENIC SHOCK [None]
  - DRUG WITHDRAWAL SYNDROME [None]
  - STATUS EPILEPTICUS [None]
  - SEPTIC SHOCK [None]
  - DRUG EFFECT DECREASED [None]
